FAERS Safety Report 7553039-1 (Version None)
Quarter: 2011Q2

REPORT INFORMATION
  Report Type: 
  Country: None (occurrence: None)
  Receive Date: 20110616
  Receipt Date: 20110610
  Transmission Date: 20111010
  Serious: Yes (Hospitalization)
  Sender: FDA-Public Use
  Company Number: JP-B.I. PHARMACEUTICALS,INC./RIDGEFIELD-2011-BP-14012NB

PATIENT
  Sex: Female
  Weight: 61.7 kg

DRUGS (9)
  1. ARICEPT [Suspect]
     Indication: DEMENTIA ALZHEIMER'S TYPE
     Dosage: 10 MG
     Route: 048
     Dates: start: 20100712
  2. ATELEC/CILNIDIPINE [Concomitant]
     Indication: ESSENTIAL HYPERTENSION
     Dosage: 10 MG
     Route: 048
     Dates: start: 20100712
  3. FLUVASTATIN [Concomitant]
     Indication: DYSLIPIDAEMIA
     Dosage: 20 MG
     Route: 048
     Dates: start: 20100712
  4. PRADAXA [Suspect]
     Indication: ATRIAL FIBRILLATION
     Dosage: 220 MG
     Route: 048
     Dates: start: 20110518
  5. ACTOS [Concomitant]
     Indication: HYPERTONIC BLADDER
     Dosage: 0.1 MG
     Route: 048
     Dates: start: 20100712
  6. ARICEPT [Suspect]
     Dosage: 10 MG
     Route: 048
     Dates: start: 20110518, end: 20110523
  7. BONOTEO/MINODRONIC ACID HYDRATE [Concomitant]
     Indication: OSTEOPOROSIS
     Dosage: 1 MG
     Route: 048
     Dates: start: 20100712
  8. OLMESARTAN MEDOXOMIL [Concomitant]
     Indication: ESSENTIAL HYPERTENSION
     Dosage: 20 MG
     Route: 048
     Dates: start: 20100712
  9. HIRUDOID/HEPARINOID [Concomitant]
     Route: 062

REACTIONS (2)
  - DECREASED APPETITE [None]
  - MALAISE [None]
